FAERS Safety Report 5556082-7 (Version None)
Quarter: 2007Q4

REPORT INFORMATION
  Report Type: 
  Country: None (occurrence: None)
  Receive Date: 20071213
  Receipt Date: 20071205
  Transmission Date: 20080405
  Serious: Yes (Other)
  Sender: FDA-Public Use
  Company Number: PHRM2007FR02764

PATIENT
  Age: 8 Year
  Sex: Female

DRUGS (2)
  1. DIACOMIT [Suspect]
     Indication: PARTIAL SEIZURES
     Route: 048
  2. TEGRETOL [Suspect]
     Indication: PARTIAL SEIZURES
     Route: 048

REACTIONS (1)
  - THYROIDITIS [None]
